FAERS Safety Report 5707128-4 (Version None)
Quarter: 2008Q2

REPORT INFORMATION
  Report Type: 
  Country: None (occurrence: None)
  Receive Date: 20080414
  Receipt Date: 20080414
  Transmission Date: 20081010
  Serious: No
  Sender: FDA-Public Use
  Company Number: None

PATIENT
  Age: 52 Year
  Sex: Male
  Weight: 69.8539 kg

DRUGS (1)
  1. SIMVASTATIN [Suspect]
     Indication: BLOOD CHOLESTEROL ABNORMAL
     Dosage: 40 MG 1 DAILY PO
     Route: 048
     Dates: start: 20080310, end: 20080312

REACTIONS (7)
  - CHEST PAIN [None]
  - DIARRHOEA [None]
  - DISCOMFORT [None]
  - DISORIENTATION [None]
  - NECK PAIN [None]
  - PAIN IN EXTREMITY [None]
  - POST PROCEDURAL COMPLICATION [None]
